FAERS Safety Report 8267083-2 (Version None)
Quarter: 2012Q2

REPORT INFORMATION
  Report Type: 
  Country: None (occurrence: None)
  Receive Date: 20120409
  Receipt Date: 20120328
  Transmission Date: 20120825
  Serious: Yes (Hospitalization, Other)
  Sender: FDA-Public Use
  Company Number: US-ELI_LILLY_AND_COMPANY-US201203009155

PATIENT
  Sex: Female

DRUGS (5)
  1. CALCIUM CARBONATE [Concomitant]
  2. VITAMIN D [Concomitant]
  3. ANALGESICS [Concomitant]
     Indication: PAIN
  4. FORTEO [Suspect]
     Indication: OSTEOPOROSIS
     Dosage: 20 UG, QD
     Route: 065
     Dates: start: 20100526
  5. SIMVASTATIN [Concomitant]

REACTIONS (3)
  - DEMENTIA [None]
  - FALL [None]
  - HIP FRACTURE [None]
